FAERS Safety Report 8203223-9 (Version None)
Quarter: 2012Q1

REPORT INFORMATION
  Report Type: 
  Country: None (occurrence: None)
  Receive Date: 20120312
  Receipt Date: 20120301
  Transmission Date: 20120608
  Serious: Yes (Hospitalization)
  Sender: FDA-Public Use
  Company Number: GB-ROCHE-1044944

PATIENT
  Sex: Female
  Weight: 72 kg

DRUGS (3)
  1. METHOTREXATE [Concomitant]
  2. ACTEMRA [Suspect]
     Indication: PRODUCT USED FOR UNKNOWN INDICATION
     Dosage: LAST DOSE PRIOR TO SAE 28/04/2011
     Dates: start: 20101015
  3. HYDROXYCHLOROQUINE SULFATE [Concomitant]

REACTIONS (1)
  - ABDOMINAL PAIN LOWER [None]
